FAERS Safety Report 10034596 (Version 4)
Quarter: 2014Q2

REPORT INFORMATION
  Report Type: Report from Study
  Country: GB (occurrence: GB)
  Receive Date: 20140325
  Receipt Date: 20140422
  Transmission Date: 20141212
  Serious: Yes (Other)
  Sender: FDA-Public Use
  Company Number: GB-ROCHE-1365857

PATIENT
  Age: 69 Year
  Sex: Female
  Weight: 53 kg

DRUGS (19)
  1. RITUXIMAB [Suspect]
     Indication: NON-HODGKIN^S LYMPHOMA UNSPECIFIED HISTOLOGY INDOLENT
     Route: 042
  2. RHUPH20/RITUXIMAB [Suspect]
     Indication: NON-HODGKIN^S LYMPHOMA UNSPECIFIED HISTOLOGY INDOLENT
     Route: 058
     Dates: start: 20140212, end: 20140317
  3. RHUPH20/RITUXIMAB [Suspect]
     Route: 058
     Dates: start: 20140326
  4. BENDAMUSTINE [Suspect]
     Indication: NON-HODGKIN^S LYMPHOMA UNSPECIFIED HISTOLOGY INDOLENT
     Dosage: DATE OF LAST DOSE PRIOR TO SAE: 13/FEB/2014
     Route: 042
     Dates: start: 20140115
  5. MEROPENEM [Concomitant]
     Indication: LOWER RESPIRATORY TRACT INFECTION
     Route: 065
     Dates: start: 20140116, end: 20140122
  6. SODIUM CHLORIDE [Concomitant]
     Indication: PYREXIA
     Route: 065
     Dates: start: 20140116, end: 20140116
  7. ALENDRONIC ACID [Concomitant]
     Route: 065
     Dates: start: 2008
  8. ADCAL-D3 [Concomitant]
     Dosage: 1 TABLET
     Route: 065
     Dates: end: 2008
  9. PARACETAMOL [Concomitant]
     Indication: BACK PAIN
     Route: 065
     Dates: start: 2008
  10. PARACETAMOL [Concomitant]
     Indication: NECK PAIN
     Route: 042
     Dates: start: 20140107, end: 20140122
  11. PARACETAMOL [Concomitant]
     Indication: LOWER RESPIRATORY TRACT INFECTION
     Dosage: PRN
     Route: 065
     Dates: start: 20140216, end: 20140319
  12. CLARITHROMYCIN [Concomitant]
     Indication: C-REACTIVE PROTEIN INCREASED
     Route: 042
     Dates: start: 20140107, end: 20140115
  13. SOLUBLE ASPIRIN [Concomitant]
     Indication: OROPHARYNGEAL PAIN
     Route: 065
     Dates: start: 20140115, end: 20140115
  14. DAKTARIN GEL [Concomitant]
     Indication: OROPHARYNGEAL PAIN
     Dosage: 4 APPLICATIONS
     Route: 065
     Dates: start: 20140204
  15. CHLORASEPTIC SPRAY [Concomitant]
     Indication: OROPHARYNGEAL PAIN
     Dosage: 4 SPRAYS
     Route: 065
     Dates: start: 20140204, end: 20140208
  16. DALTEPARIN [Concomitant]
     Route: 065
     Dates: start: 20140116, end: 20140122
  17. SENNA [Concomitant]
     Indication: CONSTIPATION
     Route: 065
     Dates: start: 20140120, end: 20140120
  18. DIFFLAM [Concomitant]
     Indication: ORAL PAIN
     Route: 065
     Dates: start: 20140214, end: 20140224
  19. NYSTATIN [Concomitant]
     Indication: ORAL PAIN
     Route: 065
     Dates: start: 20140214, end: 20140226

REACTIONS (1)
  - Skin reaction [Recovered/Resolved]
